FAERS Safety Report 10187011 (Version 2)
Quarter: 2014Q2

REPORT INFORMATION
  Report Type: Spontaneous
  Country: AU (occurrence: AU)
  Receive Date: 20140522
  Receipt Date: 20140620
  Transmission Date: 20141212
  Serious: Yes (Hospitalization, Other)
  Sender: FDA-Public Use
  Company Number: AU-009507513-1405AUS007107

PATIENT
  Age: 43 Year
  Sex: Male
  Weight: 73 kg

DRUGS (9)
  1. LISINOPRIL [Suspect]
     Dosage: DOSE UNSPECIFIED
     Route: 048
  2. RALTEGRAVIR POTASSIUM [Suspect]
     Dosage: UNK
     Route: 048
  3. EMTRICITABINE [Suspect]
     Dosage: DOSE UNSPEC
     Route: 048
     Dates: start: 20090520
  4. IBUPROFEN [Suspect]
  5. TEMAZEPAM [Suspect]
  6. ALPRAZOLAM [Concomitant]
  7. ESCITALOPRAM [Concomitant]
  8. METHAMPHETAMINE HYDROCHLORIDE [Concomitant]
     Dosage: ON A DAILY BASIS
     Dates: start: 201311
  9. RISPERIDONE [Concomitant]

REACTIONS (2)
  - Suicide attempt [Recovered/Resolved]
  - Overdose [Recovered/Resolved]
